FAERS Safety Report 7438286-1 (Version None)
Quarter: 2011Q2

REPORT INFORMATION
  Report Type: 
  Country: None (occurrence: None)
  Receive Date: 20110421
  Receipt Date: 20110421
  Transmission Date: 20111010
  Serious: Yes (Other)
  Sender: FDA-Public Use
  Company Number: None

PATIENT
  Age: 35 Year
  Sex: Female
  Weight: 90.7194 kg

DRUGS (1)
  1. SENSODYNE-F [Suspect]
     Indication: SENSITIVITY OF TEETH
     Dosage: 5% THREE TIMES A DAY OTHER
     Route: 050
     Dates: start: 20110314, end: 20110409

REACTIONS (6)
  - DYSGEUSIA [None]
  - PALPITATIONS [None]
  - HYPOAESTHESIA ORAL [None]
  - ORAL PAIN [None]
  - GLOSSITIS [None]
  - GLOSSODYNIA [None]
